FAERS Safety Report 6883717-9 (Version None)
Quarter: 2010Q3

REPORT INFORMATION
  Report Type: 
  Country: None (occurrence: None)
  Receive Date: 20100729
  Receipt Date: 20100726
  Transmission Date: 20110219
  Serious: Yes (Congenital Anomaly)
  Sender: FDA-Public Use
  Company Number: A0872409A

PATIENT
  Sex: Male

DRUGS (10)
  1. COMBIVIR [Suspect]
     Indication: HIV INFECTION
     Dates: start: 20050517
  2. VIRAMUNE [Suspect]
     Indication: HIV INFECTION
     Dates: start: 20050517
  3. TRIMETHOPRIM + SULFAMETHOXAZOLE [Concomitant]
  4. DEXAMETHASONE [Concomitant]
  5. FERROUS SULFATE [Concomitant]
  6. FOLIC ACID [Concomitant]
  7. NYSTATIN [Concomitant]
  8. SULFAMETHOXAZOLE [Concomitant]
  9. TOBACCO [Concomitant]
  10. TOBRAMYCIN [Concomitant]

REACTIONS (3)
  - DRUG EXPOSURE DURING PREGNANCY [None]
  - EXOMPHALOS [None]
  - PULMONARY ARTERY STENOSIS CONGENITAL [None]
